FAERS Safety Report 4641062-6 (Version None)
Quarter: 2005Q2

REPORT INFORMATION
  Report Type: 
  Country: None (occurrence: None)
  Receive Date: 20050421
  Receipt Date: 20050408
  Transmission Date: 20051028
  Serious: Yes (Hospitalization)
  Sender: FDA-Public Use
  Company Number: CZ-JNJFOC-20050305705

PATIENT
  Sex: Female

DRUGS (7)
  1. INFLIXIMAB [Suspect]
     Indication: RHEUMATOID ARTHRITIS
     Route: 042
  2. MEDROL [Concomitant]
     Route: 065
  3. METHOTREXATE [Concomitant]
     Route: 065
  4. COXTRAL [Concomitant]
     Route: 065
  5. ACIDUM FOLICUM [Concomitant]
     Route: 065
  6. SIMEPAR [Concomitant]
     Route: 065
  7. QUAMATEL [Concomitant]
     Route: 065

REACTIONS (2)
  - C-REACTIVE PROTEIN INCREASED [None]
  - URINARY TRACT INFECTION [None]
